FAERS Safety Report 6256105-6 (Version None)
Quarter: 2009Q3

REPORT INFORMATION
  Report Type: 
  Country: None (occurrence: None)
  Receive Date: 20090706
  Receipt Date: 20090623
  Transmission Date: 20100115
  Serious: Yes (Death, Hospitalization, Other)
  Sender: FDA-Public Use
  Company Number: NL-ELI_LILLY_AND_COMPANY-NL200906005561

PATIENT
  Sex: Male
  Weight: 65 kg

DRUGS (6)
  1. GEMZAR [Suspect]
     Indication: BLADDER CANCER
     Dates: start: 20090301
  2. OFLOXACIN [Concomitant]
     Indication: URINARY TRACT INFECTION
     Dosage: 200 MG, 2/D
     Dates: start: 20090403, end: 20090411
  3. CARBOPLATIN [Concomitant]
     Indication: BLADDER CANCER
     Dosage: 10MG/ML 5ML ONCOT
     Dates: start: 20090301
  4. SERETIDE DISKUS [Concomitant]
     Dosage: UNK UNK, 2/D 50-100MCG 60DO
  5. CAPTOPRIL AND HYDROCHLOROTHIAZIDE [Concomitant]
     Dosage: UNK UNK, 2/D 50-25MG
  6. METOPROLOL TARTRATE [Concomitant]
     Dosage: 100 MG, DAILY (1/D)

REACTIONS (4)
  - CEREBROVASCULAR ACCIDENT [None]
  - COMA [None]
  - FACIAL PARESIS [None]
  - TENDON RUPTURE [None]
